FAERS Safety Report 9284881 (Version 1)
Quarter: 2013Q2

REPORT INFORMATION
  Report Type: Spontaneous
  Country: US (occurrence: US)
  Receive Date: 20130513
  Receipt Date: 20130513
  Transmission Date: 20140414
  Serious: No
  Sender: FDA-Public Use
  Company Number: US-B.I. PHARMACEUTICALS,INC./RIDGEFIELD-2013-BI-13235BP

PATIENT
  Age: 49 Year
  Sex: Female

DRUGS (1)
  1. SPIRIVA [Suspect]
     Indication: HOUSE DUST ALLERGY
     Dosage: 18 MCG
     Route: 055

REACTIONS (1)
  - Incorrect route of drug administration [Recovered/Resolved]
